FAERS Safety Report 10901502 (Version 1)
Quarter: 2015Q1

REPORT INFORMATION
  Report Type: Spontaneous
  Country: US (occurrence: None)
  Receive Date: 20150303
  Receipt Date: 20150303
  Transmission Date: 20150721
  Serious: Yes (Disabling)
  Sender: FDA-Public Use
  Company Number: None

PATIENT
  Age: 81 Year
  Sex: Female
  Weight: 53.98 kg

DRUGS (7)
  1. RISEDRONATE SODIUM. [Concomitant]
     Active Substance: RISEDRONATE SODIUM
  2. GLUCOSAMINE [Concomitant]
     Active Substance: GLUCOSAMINE
  3. LUTEIN [Concomitant]
     Active Substance: LUTEIN
  4. CENTRUM SILVER [Concomitant]
     Active Substance: VITAMINS
  5. CALCIUM + VIT. D [Concomitant]
  6. IRON SULFATE [Concomitant]
     Active Substance: FERROUS SULFATE ANHYDROUS
  7. LEVAQUIN [Suspect]
     Active Substance: LEVOFLOXACIN
     Indication: BRONCHITIS
     Dosage: ONE PILL DAILY, ONCE DAILY, TAKEN BY MOUTH
     Route: 048
     Dates: start: 20150121, end: 20150127

REACTIONS (3)
  - Pain in extremity [None]
  - Inflammation [None]
  - Tendon disorder [None]

NARRATIVE: CASE EVENT DATE: 20150121
